FAERS Safety Report 7837965-1 (Version None)
Quarter: 2011Q4

REPORT INFORMATION
  Report Type: 
  Country: None (occurrence: None)
  Receive Date: 20111024
  Receipt Date: 20101122
  Transmission Date: 20120403
  Serious: No
  Sender: FDA-Public Use
  Company Number: US-ABBOTT-10P-163-0687027-00

PATIENT
  Sex: Female

DRUGS (2)
  1. LUPRON DEPOT [Suspect]
  2. LUPRON DEPOT [Suspect]
     Indication: ENDOMETRIOSIS

REACTIONS (2)
  - MENTAL DISORDER [None]
  - AFFECT LABILITY [None]
